FAERS Safety Report 6411831-0 (Version None)
Quarter: 2009Q4

REPORT INFORMATION
  Report Type: 
  Country: None (occurrence: None)
  Receive Date: 20091023
  Receipt Date: 20091014
  Transmission Date: 20100525
  Serious: Yes (Hospitalization, Other)
  Sender: FDA-Public Use
  Company Number: US-JNJFOC-20091002424

PATIENT
  Sex: Female

DRUGS (4)
  1. REMICADE [Suspect]
     Route: 042
     Dates: start: 20071113, end: 20091006
  2. REMICADE [Suspect]
     Dosage: 12 VIALS
     Route: 042
     Dates: start: 20071113, end: 20091006
  3. REMICADE [Suspect]
     Dosage: 12 VIALS
     Route: 042
     Dates: start: 20071113, end: 20091006
  4. REMICADE [Suspect]
     Indication: RHEUMATOID ARTHRITIS
     Route: 042
     Dates: start: 20071113, end: 20091006

REACTIONS (3)
  - OVARIAN CYST [None]
  - PYREXIA [None]
  - SEPSIS [None]
